FAERS Safety Report 4606131-5 (Version None)
Quarter: 2005Q1

REPORT INFORMATION
  Report Type: 
  Country: None (occurrence: None)
  Receive Date: 20050311
  Receipt Date: 20050228
  Transmission Date: 20050727
  Serious: Yes (Hospitalization, Other)
  Sender: FDA-Public Use
  Company Number: DE-JNJFOC-20050300288

PATIENT
  Age: 23 Year
  Sex: Female
  Weight: 42 kg

DRUGS (5)
  1. REMICADE [Suspect]
     Indication: CROHN'S DISEASE
     Route: 042
  2. DECORTIN [Concomitant]
     Indication: CROHN'S DISEASE
  3. AZAMEDAC [Concomitant]
     Indication: CROHN'S DISEASE
  4. MESALAZIN [Concomitant]
     Indication: CROHN'S DISEASE
  5. BUDESONID [Concomitant]
     Indication: CROHN'S DISEASE

REACTIONS (4)
  - ARTHRITIS ENTEROPATHIC [None]
  - CROHN'S DISEASE [None]
  - DRUG EFFECT DECREASED [None]
  - MYOSITIS [None]
